FAERS Safety Report 23419996 (Version 2)
Quarter: 2024Q4

REPORT INFORMATION
  Report Type: Report from Study
  Country: GB (occurrence: GB)
  Receive Date: 20240119
  Receipt Date: 20241218
  Transmission Date: 20250114
  Serious: Yes (Hospitalization)
  Sender: SANDOZ
  Company Number: GB-SANDOZ-SDZ2024GB005342

PATIENT
  Age: 11 Year
  Sex: Female

DRUGS (1)
  1. OMNITROPE [Suspect]
     Active Substance: SOMATROPIN
     Dosage: 1.20 MG QD
     Route: 058
     Dates: end: 202408

REACTIONS (2)
  - Eye swelling [Unknown]
  - Headache [Unknown]

NARRATIVE: CASE EVENT DATE: 20240201
